FAERS Safety Report 16903318 (Version 1)
Quarter: 2019Q4

REPORT INFORMATION
  Report Type: Spontaneous
  Country: US (occurrence: US)
  Receive Date: 20191010
  Receipt Date: 20191010
  Transmission Date: 20200122
  Serious: Yes (Other)
  Sender: FDA-Public Use
  Company Number: US-GILEAD-2019-0432370

PATIENT
  Age: 46 Year
  Sex: Female

DRUGS (3)
  1. RITONAVIR. [Concomitant]
     Active Substance: RITONAVIR
  2. ATAZANAVIR. [Concomitant]
     Active Substance: ATAZANAVIR
  3. TRUVADA [Suspect]
     Active Substance: EMTRICITABINE\TENOFOVIR DISOPROXIL FUMARATE
     Indication: HIV INFECTION
     Dosage: UNK
     Route: 065

REACTIONS (2)
  - Renal tubular acidosis [Recovered/Resolved]
  - Fanconi syndrome acquired [Recovered/Resolved]
